FAERS Safety Report 8228038-7 (Version None)
Quarter: 2012Q1

REPORT INFORMATION
  Report Type: 
  Country: None (occurrence: None)
  Receive Date: 20120322
  Receipt Date: 20120118
  Transmission Date: 20120608
  Serious: No
  Sender: FDA-Public Use
  Company Number: US-BRISTOL-MYERS SQUIBB COMPANY-16349813

PATIENT
  Age: 76 Year
  Sex: Male

DRUGS (1)
  1. ERBITUX [Suspect]

REACTIONS (5)
  - OROPHARYNGEAL PAIN [None]
  - SPEECH DISORDER [None]
  - EXFOLIATIVE RASH [None]
  - FATIGUE [None]
  - DYSPHONIA [None]
